FAERS Safety Report 7012994-9 (Version None)
Quarter: 2010Q3

REPORT INFORMATION
  Report Type: 
  Country: None (occurrence: None)
  Receive Date: 20100915
  Receipt Date: 20100409
  Transmission Date: 20110219
  Serious: Yes (Life-Threatening, Other)
  Sender: FDA-Public Use
  Company Number: US-WYE-H14494910

PATIENT
  Age: 32 Year
  Sex: Female

DRUGS (1)
  1. ADVIL [Suspect]
     Indication: PRODUCT USED FOR UNKNOWN INDICATION
     Dosage: 400 MG ONE TIME, ORAL
     Route: 048
     Dates: start: 20100409, end: 20100409

REACTIONS (1)
  - HYPERSENSITIVITY [None]
